FAERS Safety Report 9467386 (Version 3)
Quarter: 2013Q4

REPORT INFORMATION
  Report Type: Spontaneous
  Country: JP (occurrence: JP)
  Receive Date: 20130821
  Receipt Date: 20131011
  Transmission Date: 20140711
  Serious: Yes (Hospitalization)
  Sender: FDA-Public Use
  Company Number: JP-ASTRAZENECA-2013SE63582

PATIENT
  Age: 24185 Day
  Sex: Male
  Weight: 59 kg

DRUGS (4)
  1. ZOLADEX [Suspect]
     Indication: PROSTATE CANCER
     Route: 058
     Dates: start: 20130710, end: 20130807
  2. BICALUTAMIDE [Concomitant]
     Indication: PROSTATE CANCER
     Route: 048
     Dates: start: 20130606
  3. MAINTATE [Concomitant]
     Indication: HYPERTENSION
     Route: 048
     Dates: start: 2008
  4. IRGAS [Concomitant]
     Indication: GASTRITIS
     Route: 048

REACTIONS (5)
  - Subcutaneous haematoma [Recovered/Resolved]
  - Vascular injury [Recovered/Resolved]
  - Haemorrhage subcutaneous [Recovered/Resolved]
  - Abdominal wall haematoma [Recovered/Resolved]
  - Wrong technique in drug usage process [Unknown]
